FAERS Safety Report 13594138 (Version 1)
Quarter: 2017Q2

REPORT INFORMATION
  Report Type: Spontaneous
  Country: FR (occurrence: FR)
  Receive Date: 20170530
  Receipt Date: 20170530
  Transmission Date: 20170830
  Serious: Yes (Hospitalization)
  Sender: FDA-Public Use
  Company Number: FR-SA-2017SA090100

PATIENT
  Age: 49 Year
  Sex: Male

DRUGS (12)
  1. LOVENOX [Suspect]
     Active Substance: ENOXAPARIN SODIUM
     Route: 058
     Dates: start: 20170217, end: 20170228
  2. PREGABALIN. [Suspect]
     Active Substance: PREGABALIN
     Dosage: 75 MG IN MORNING AND 100 MG IN MORNING AND EVENING
     Route: 048
     Dates: start: 20170217
  3. PREGABALIN. [Suspect]
     Active Substance: PREGABALIN
     Route: 048
     Dates: start: 20170224, end: 20170228
  4. DOLIPRANE [Suspect]
     Active Substance: ACETAMINOPHEN
     Route: 048
     Dates: start: 20170207, end: 20170228
  5. PREGABALIN. [Suspect]
     Active Substance: PREGABALIN
     Route: 048
     Dates: start: 20170224, end: 20170224
  6. CODOLIPRANE [Concomitant]
     Active Substance: ACETAMINOPHEN\CODEINE PHOSPHATE
     Route: 065
     Dates: start: 20170205, end: 20170207
  7. THIOCOLCHICOSIDE [Concomitant]
     Active Substance: THIOCOLCHICOSIDE
     Route: 065
     Dates: start: 20170205, end: 20170207
  8. LAROXYL [Concomitant]
     Active Substance: AMITRIPTYLINE
     Route: 065
     Dates: start: 20170218
  9. PREGABALIN. [Suspect]
     Active Substance: PREGABALIN
     Dosage: 75 MGX 2/DAY AND 100 MG/EVENING.
     Route: 048
     Dates: start: 20170220
  10. IBUPROFEN. [Concomitant]
     Active Substance: IBUPROFEN
     Route: 065
     Dates: start: 20170205, end: 20170207
  11. VITAMIN A [Concomitant]
     Active Substance: VITAMIN A
     Dosage: FORM: DROPS
     Route: 065
  12. DUPHALAC [Concomitant]
     Active Substance: LACTULOSE
     Route: 065

REACTIONS (1)
  - Hepatitis [Recovered/Resolved]

NARRATIVE: CASE EVENT DATE: 20170221
